FAERS Safety Report 17101592 (Version 2)
Quarter: 2020Q3

REPORT INFORMATION
  Report Type: Report from Study
  Country: GB (occurrence: GB)
  Receive Date: 20191202
  Receipt Date: 20200527
  Transmission Date: 20201105
  Serious: Yes (Death, Other)
  Sender: FDA-Public Use
  Company Number: GB-ROCHE-2484099

PATIENT
  Age: 55 Year
  Sex: Female
  Weight: 67.9 kg

DRUGS (7)
  1. IPATASERTIB. [Suspect]
     Active Substance: IPATASERTIB
     Indication: GLIOBLASTOMA MULTIFORME
     Route: 048
     Dates: start: 20190701, end: 20190910
  2. PROCARBAZINE [Concomitant]
     Active Substance: PROCARBAZINE
     Route: 065
     Dates: start: 20190930
  3. ATEZOLIZUMAB. [Suspect]
     Active Substance: ATEZOLIZUMAB
     Indication: GLIOBLASTOMA MULTIFORME
     Route: 042
     Dates: start: 20190722, end: 20190902
  4. DEXAMETHASONE. [Concomitant]
     Active Substance: DEXAMETHASONE
     Indication: BRAIN OEDEMA
     Route: 065
     Dates: start: 20190920
  5. LOMUSTINE. [Concomitant]
     Active Substance: LOMUSTINE
     Route: 065
     Dates: start: 20190930
  6. PROCARBAZINE [Concomitant]
     Active Substance: PROCARBAZINE
     Dosage: 50 MG OM AND 100 MG ON
     Route: 065
     Dates: start: 20191001, end: 20191010
  7. VINCRISTINE [Concomitant]
     Active Substance: VINCRISTINE
     Route: 065
     Dates: start: 20190930

REACTIONS (1)
  - Transaminases increased [Recovering/Resolving]

NARRATIVE: CASE EVENT DATE: 20191119
